FAERS Safety Report 6072637-8 (Version None)
Quarter: 2009Q1

REPORT INFORMATION
  Report Type: 
  Country: None (occurrence: None)
  Receive Date: 20090210
  Receipt Date: 20090202
  Transmission Date: 20090719
  Serious: Yes (Hospitalization, Other)
  Sender: FDA-Public Use
  Company Number: US-CELGENEUS-163-21880-08100147

PATIENT
  Sex: Male

DRUGS (2)
  1. REVLIMID [Suspect]
     Indication: MULTIPLE MYELOMA
     Route: 048
     Dates: start: 20080915, end: 20080918
  2. REVLIMID [Suspect]
     Route: 048
     Dates: start: 20080920

REACTIONS (3)
  - CYSTITIS [None]
  - HYPERVISCOSITY SYNDROME [None]
  - TRANSIENT ISCHAEMIC ATTACK [None]
